FAERS Safety Report 5339324-2 (Version None)
Quarter: 2007Q2

REPORT INFORMATION
  Report Type: 
  Country: None (occurrence: None)
  Receive Date: 20070322
  Receipt Date: 20070126
  Transmission Date: 20071010
  Serious: Yes (Other)
  Sender: FDA-Public Use
  Company Number: 200614573BCC

PATIENT
  Age: 72 Year
  Sex: Male
  Weight: 54.4316 kg

DRUGS (1)
  1. ALEVE (CAPLET) [Suspect]
     Indication: PAIN
     Dosage: 440 MG, ONCE, ORAL
     Route: 048
     Dates: start: 20061106

REACTIONS (1)
  - HAEMOPTYSIS [None]
